FAERS Safety Report 10707046 (Version 2)
Quarter: 2015Q1

REPORT INFORMATION
  Report Type: Spontaneous
  Country: DE (occurrence: DE)
  Receive Date: 20150113
  Receipt Date: 20150113
  Transmission Date: 20150721
  Serious: Yes (Other)
  Sender: FDA-Public Use
  Company Number: DE-CELGENE-062-21660-14022025

PATIENT
  Age: 38 Year
  Sex: Female

DRUGS (6)
  1. FULVESTRANT [Concomitant]
     Active Substance: FULVESTRANT
     Indication: LEUKOPENIA
     Dosage: 3.3333 MILLIGRAM/SQ. METER
     Route: 065
  2. G-CSF [Concomitant]
     Active Substance: GRANULOCYTE COLONY-STIMULATING FACTOR NOS
     Indication: LEUKOPENIA
     Route: 065
  3. ERYTHROPOETIN [Concomitant]
     Active Substance: ERYTHROPOIETIN
     Indication: LEUKOPENIA
     Dosage: IE
     Route: 058
  4. ABRAXANE [Suspect]
     Active Substance: PACLITAXEL
     Indication: BREAST CANCER
     Route: 065
     Dates: start: 20121011
  5. ABRAXANE [Suspect]
     Active Substance: PACLITAXEL
     Route: 065
  6. DOXORUBICIN [Concomitant]
     Active Substance: DOXORUBICIN
     Indication: LEUKOPENIA
     Route: 065

REACTIONS (5)
  - Ovarian cyst [Recovered/Resolved]
  - Constipation [Recovered/Resolved]
  - Large intestinal stenosis [Recovered/Resolved]
  - Abdominal pain upper [Unknown]
  - Breast cancer [Not Recovered/Not Resolved]

NARRATIVE: CASE EVENT DATE: 20130114
